FAERS Safety Report 14340118 (Version 6)
Quarter: 2018Q1

REPORT INFORMATION
  Report Type: Spontaneous
  Country: DE (occurrence: DE)
  Receive Date: 20171231
  Receipt Date: 20180320
  Transmission Date: 20180509
  Serious: Yes (Hospitalization, Other)
  Sender: FDA-Public Use
  Company Number: PHHY2017DE191869

PATIENT
  Age: 35 Year
  Sex: Female

DRUGS (9)
  1. METHYLPHENIDATE. [Concomitant]
     Active Substance: METHYLPHENIDATE
     Indication: PRODUCT USED FOR UNKNOWN INDICATION
     Dosage: UNK
     Route: 042
  2. MIRTAZAPINE. [Concomitant]
     Active Substance: MIRTAZAPINE
     Indication: PRODUCT USED FOR UNKNOWN INDICATION
     Dosage: UNK
     Route: 065
  3. PREGABALIN. [Concomitant]
     Active Substance: PREGABALIN
     Indication: PRODUCT USED FOR UNKNOWN INDICATION
     Dosage: 900 MG, QD
     Route: 048
  4. LEVOMETHADONE [Concomitant]
     Active Substance: LEVOMETHADONE
     Indication: PRODUCT USED FOR UNKNOWN INDICATION
     Dosage: 8 ML, QD
     Route: 065
  5. BUPROPION. [Suspect]
     Active Substance: BUPROPION
     Dosage: TOTAL OF 25 TIMES
     Route: 042
  6. DIAZEPAM. [Concomitant]
     Active Substance: DIAZEPAM
     Indication: PRODUCT USED FOR UNKNOWN INDICATION
     Dosage: 30 MG, UNK
     Route: 065
  7. FENTANYL. [Concomitant]
     Active Substance: FENTANYL
     Indication: PRODUCT USED FOR UNKNOWN INDICATION
     Route: 042
  8. AMITRIPTYLINE [Concomitant]
     Active Substance: AMITRIPTYLINE
     Indication: PRODUCT USED FOR UNKNOWN INDICATION
     Dosage: UNK
     Route: 065
  9. BUPROPION. [Suspect]
     Active Substance: BUPROPION
     Indication: PRODUCT USED FOR UNKNOWN INDICATION
     Dosage: 600 MG, UNK
     Route: 042

REACTIONS (18)
  - Altered state of consciousness [Unknown]
  - Injection site induration [Unknown]
  - Paraesthesia [Unknown]
  - Seizure [Unknown]
  - Injection site erythema [Unknown]
  - Pain [Unknown]
  - Dyspnoea [Unknown]
  - Euphoric mood [Unknown]
  - Drug abuse [Unknown]
  - Hypoaesthesia [Unknown]
  - Injection site discharge [Unknown]
  - Drug dependence [Unknown]
  - Product use issue [Unknown]
  - Erythema [Unknown]
  - Administration site abscess sterile [Unknown]
  - Pyrexia [Unknown]
  - Abscess sterile [Unknown]
  - Generalised tonic-clonic seizure [Unknown]
